FAERS Safety Report 23677741 (Version 3)
Quarter: 2025Q1

REPORT INFORMATION
  Report Type: Spontaneous
  Country: PL (occurrence: PL)
  Receive Date: 20240327
  Receipt Date: 20250324
  Transmission Date: 20250409
  Serious: Yes (Other)
  Sender: PFIZER
  Company Number: PL-002147023-NVSC2024PL055956

PATIENT
  Age: 66 Year
  Sex: Female

DRUGS (10)
  1. METHYLPREDNISOLONE [Suspect]
     Active Substance: METHYLPREDNISOLONE
     Indication: Graft versus host disease
     Route: 065
  2. TACROLIMUS [Suspect]
     Active Substance: TACROLIMUS
     Indication: Graft versus host disease
     Route: 065
  3. BUDESONIDE [Suspect]
     Active Substance: BUDESONIDE
     Indication: Graft versus host disease
     Route: 048
  4. RUXOLITINIB [Suspect]
     Active Substance: RUXOLITINIB
     Indication: Graft versus host disease
     Dosage: 5 MG, 2X/DAY
     Route: 065
  5. RUXOLITINIB [Suspect]
     Active Substance: RUXOLITINIB
     Dosage: 5 MG, 1X/DAY
     Route: 065
  6. RUXOLITINIB [Suspect]
     Active Substance: RUXOLITINIB
  7. METHOTREXATE [Concomitant]
     Active Substance: METHOTREXATE
     Route: 065
  8. RIFAXIMIN [Concomitant]
     Active Substance: RIFAXIMIN
     Indication: Faecal calprotectin abnormal
     Route: 065
  9. AZITHROMYCIN [Concomitant]
     Active Substance: AZITHROMYCIN
     Indication: Faecal calprotectin abnormal
     Route: 065
  10. CYCLOSPORINE [Concomitant]
     Active Substance: CYCLOSPORINE
     Route: 065

REACTIONS (16)
  - Myopathy [Unknown]
  - Cytomegalovirus infection [Unknown]
  - Epstein-Barr virus infection reactivation [Unknown]
  - Pneumatosis intestinalis [Unknown]
  - Cardiac failure [Unknown]
  - Type 2 diabetes mellitus [Unknown]
  - Condition aggravated [Unknown]
  - Hypogammaglobulinaemia [Unknown]
  - Cognitive disorder [Unknown]
  - Platelet count decreased [Unknown]
  - Haemorrhagic diathesis [Unknown]
  - Hypoproteinaemia [Unknown]
  - Hypoalbuminaemia [Unknown]
  - Asthenia [Unknown]
  - Adjustment disorder [Unknown]
  - Off label use [Unknown]
